FAERS Safety Report 5661548-5 (Version None)
Quarter: 2008Q1

REPORT INFORMATION
  Report Type: 
  Country: None (occurrence: None)
  Receive Date: 20080312
  Receipt Date: 20080305
  Transmission Date: 20080703
  Serious: Yes (Hospitalization)
  Sender: FDA-Public Use
  Company Number: PHHY2008BR02836

PATIENT
  Age: 66 Year
  Sex: Female
  Weight: 66 kg

DRUGS (4)
  1. FORADIL [Suspect]
     Indication: CHRONIC OBSTRUCTIVE PULMONARY DISEASE
     Dosage: 2 CAPSULE/DAY
  2. PURAN T4 [Concomitant]
     Indication: THYROID DISORDER
     Dosage: 25 UG, QD
     Route: 048
  3. THEOPHYLLINE [Concomitant]
     Indication: ASTHMA
     Dosage: 100 MG, 2 TABS BID
     Route: 048
     Dates: start: 19980101
  4. CALCIUM [Concomitant]
     Indication: OSTEOPENIA
     Dosage: 250 MG, 2TAB BID
     Route: 048

REACTIONS (9)
  - ANAEMIC HYPOXIA [None]
  - CHRONIC OBSTRUCTIVE PULMONARY DISEASE [None]
  - DIZZINESS [None]
  - DYSPNOEA [None]
  - GAIT DISTURBANCE [None]
  - OSTEOPENIA [None]
  - PULMONARY FUNCTION TEST DECREASED [None]
  - PYREXIA [None]
  - RENAL PAIN [None]
